FAERS Safety Report 5605463-1 (Version None)
Quarter: 2008Q1

REPORT INFORMATION
  Report Type: 
  Country: None (occurrence: None)
  Receive Date: 20080124
  Receipt Date: 20080124
  Transmission Date: 20080703
  Serious: Yes (Hospitalization)
  Sender: FDA-Public Use
  Company Number: None

PATIENT
  Sex: Female
  Weight: 68 kg

DRUGS (1)
  1. TAXOTERE [Suspect]
     Dosage: 128 MG

REACTIONS (4)
  - FATIGUE [None]
  - NEUTROPENIA [None]
  - PHARYNGOLARYNGEAL PAIN [None]
  - PYREXIA [None]
